FAERS Safety Report 8161256-5 (Version None)
Quarter: 2012Q1

REPORT INFORMATION
  Report Type: 
  Country: None (occurrence: None)
  Receive Date: 20120222
  Receipt Date: 20120222
  Transmission Date: 20120608
  Serious: Yes (Life-Threatening, Disabling)
  Sender: FDA-Public Use
  Company Number: None

PATIENT
  Sex: Female
  Weight: 95.2554 kg

DRUGS (1)
  1. TRAMADOL HCL [Suspect]
     Indication: BACK PAIN
     Dosage: 1 TABLET 4 TIMES DAILY AS NEEDED

REACTIONS (4)
  - FEELING ABNORMAL [None]
  - PRODUCT ODOUR ABNORMAL [None]
  - BRADYPHRENIA [None]
  - PRODUCT FORMULATION ISSUE [None]
